FAERS Safety Report 9222457 (Version 1)
Quarter: 2013Q2

REPORT INFORMATION
  Report Type: Report from Study
  Country: US (occurrence: US)
  Receive Date: 20130410
  Receipt Date: 20130410
  Transmission Date: 20140414
  Serious: No
  Sender: FDA-Public Use
  Company Number: US-VERTEX PHARMACEUTICALS INC.-2013-004616

PATIENT
  Age: 47 Year
  Sex: Female
  Weight: 95 kg

DRUGS (9)
  1. VX-950 (TELAPREVIR) [Suspect]
     Indication: HEPATITIS C
     Dosage: 750 MG, TID
     Route: 048
     Dates: start: 20130329
  2. PEGASYS [Suspect]
     Indication: HEPATITIS C
     Dosage: 180 ?G, QW
     Route: 058
     Dates: start: 20130329
  3. RIBAPAK [Suspect]
     Indication: HEPATITIS C
     Dosage: 600 MG, BID
     Route: 048
     Dates: start: 20130329
  4. CYMBALTA [Concomitant]
     Dosage: 20 MG, QD
     Route: 048
  5. AMLODIPINE BESYLATE [Concomitant]
     Dosage: 5 MG, QD
     Route: 048
  6. RISPERIDONE [Concomitant]
     Dosage: 1 MG, QD
     Route: 048
  7. ALPRAZOLAM [Concomitant]
     Dosage: 0.5 MG, QD
     Route: 048
  8. ESTRADIOL [Concomitant]
     Dosage: 2 MG, QD
     Route: 048
  9. TYLENOL [Concomitant]
     Dosage: 325 MG, PRN
     Route: 048

REACTIONS (4)
  - Influenza like illness [Unknown]
  - Headache [Unknown]
  - Flushing [Unknown]
  - Injection site erythema [Unknown]
